FAERS Safety Report 17494666 (Version 1)
Quarter: 2020Q1

REPORT INFORMATION
  Report Type: Spontaneous
  Country: US (occurrence: US)
  Receive Date: 20200303
  Receipt Date: 20200303
  Transmission Date: 20200409
  Serious: No
  Sender: FDA-Public Use
  Company Number: US-AMNEAL PHARMACEUTICALS-2019-AMRX-02703

PATIENT
  Age: 84 Year
  Sex: Female
  Weight: 70.76 kg

DRUGS (8)
  1. LIPITOR [Concomitant]
     Active Substance: ATORVASTATIN CALCIUM
     Indication: BLOOD CHOLESTEROL
     Dosage: 1 DOSAGE FORM, MORNING
     Route: 065
  2. LISINOPRIL. [Concomitant]
     Active Substance: LISINOPRIL
     Indication: HYPERTENSION
     Dosage: 1 DOSAGE FORM, MORNING
     Route: 065
  3. NORVASC [Concomitant]
     Active Substance: AMLODIPINE BESYLATE
     Indication: HYPERTENSION
     Dosage: 1 DOSAGE FORM, MORNING
     Route: 065
  4. PROZAC [Concomitant]
     Active Substance: FLUOXETINE HYDROCHLORIDE
     Indication: PRODUCT USED FOR UNKNOWN INDICATION
     Dosage: 1 CAPSULES, MORNING
     Route: 065
  5. RYTARY [Suspect]
     Active Substance: CARBIDOPA\LEVODOPA
     Indication: PARKINSON^S DISEASE
     Dosage: 3 CAPSULES, 3 /DAY
     Route: 048
     Dates: start: 20191105, end: 20191109
  6. SOTALOL. [Concomitant]
     Active Substance: SOTALOL
     Indication: ATRIAL FIBRILLATION
     Dosage: 2 DOSAGE FORM, 1 TABLET MORNING, 1 TABLET AFTERNOON
     Route: 065
  7. ELIQUIS [Concomitant]
     Active Substance: APIXABAN
     Indication: CEREBROVASCULAR ACCIDENT
     Dosage: 2 DOSAGE FORM, 1 TABLET MORNING, 1 TABLET AFTERNOON
     Route: 065
  8. ABILIFY [Concomitant]
     Active Substance: ARIPIPRAZOLE
     Indication: PRODUCT USED FOR UNKNOWN INDICATION
     Dosage: 1 DOSAGE FORM, MORNING
     Route: 065

REACTIONS (3)
  - Headache [Recovered/Resolved]
  - Agitation [Recovered/Resolved]
  - Insomnia [Recovered/Resolved]

NARRATIVE: CASE EVENT DATE: 20191108
